FAERS Safety Report 4888653-5 (Version None)
Quarter: 2005Q4

REPORT INFORMATION
  Report Type: 
  Country: None (occurrence: None)
  Receive Date: 20051216
  Receipt Date: 20050825
  Transmission Date: 20060501
  Serious: No
  Sender: FDA-Public Use
  Company Number: USA0508106476

PATIENT
  Sex: Male

DRUGS (2)
  1. CIALIS [Suspect]
     Indication: ERECTILE DYSFUNCTION
     Dosage: 20 MG
     Dates: start: 20050811
  2. SYNTHROID [Concomitant]

REACTIONS (1)
  - THERAPEUTIC RESPONSE DECREASED [None]
